FAERS Safety Report 7725979-1 (Version None)
Quarter: 2011Q3

REPORT INFORMATION
  Report Type: 
  Country: None (occurrence: None)
  Receive Date: 20110902
  Receipt Date: 20110902
  Transmission Date: 20111222
  Serious: Yes (Other)
  Sender: FDA-Public Use
  Company Number: DK-PFIZER INC-2011201118

PATIENT
  Age: 62 Year
  Sex: Male

DRUGS (6)
  1. NEBIDO [Concomitant]
     Dosage: GIVEN EVERY 7 WEEK
  2. GENOTROPIN [Concomitant]
     Dosage: UNK
     Dates: end: 20100801
  3. LYRICA [Suspect]
     Indication: MENTAL DISORDER
     Dosage: 150 MG, 2X/DAY
     Dates: start: 20101015
  4. HYDROCORTISONE [Concomitant]
     Dosage: 10 MG, 2X/DAY
  5. LITHIUM CITRATE [Concomitant]
     Dosage: 50 UG, 2X/DAY
  6. VITAMIN D [Concomitant]
     Dosage: 2 TABLETS DAILY

REACTIONS (1)
  - VITREOUS DETACHMENT [None]
